FAERS Safety Report 13511761 (Version 4)
Quarter: 2017Q2

REPORT INFORMATION
  Report Type: Report from Study
  Country: AU (occurrence: AU)
  Receive Date: 20170504
  Receipt Date: 20170605
  Transmission Date: 20170830
  Serious: Yes (Hospitalization, Other)
  Sender: FDA-Public Use
  Company Number: AU-OTSUKA-2017_009366

PATIENT
  Age: 67 Year
  Sex: Female
  Weight: 89.6 kg

DRUGS (2)
  1. TOLVAPTAN [Suspect]
     Active Substance: TOLVAPTAN
     Dosage: 30 MG, QD (IN EVENING)
     Route: 048
     Dates: start: 20170309, end: 20170424
  2. TOLVAPTAN [Suspect]
     Active Substance: TOLVAPTAN
     Indication: CONGENITAL CYSTIC KIDNEY DISEASE
     Dosage: 90 MG, QD (IN MORNING)
     Route: 048
     Dates: start: 20170309, end: 20170424

REACTIONS (6)
  - Metabolic acidosis [Recovered/Resolved]
  - Ischaemic hepatitis [Recovered/Resolved]
  - Shock [Recovered/Resolved]
  - Chronic obstructive pulmonary disease [Recovered/Resolved with Sequelae]
  - Acute kidney injury [Recovered/Resolved]
  - Hypotension [Recovered/Resolved]

NARRATIVE: CASE EVENT DATE: 20170424
